FAERS Safety Report 7916117-0 (Version None)
Quarter: 2011Q4

REPORT INFORMATION
  Report Type: 
  Country: None (occurrence: None)
  Receive Date: 20111116
  Receipt Date: 20111107
  Transmission Date: 20120403
  Serious: Yes (Death, Hospitalization)
  Sender: FDA-Public Use
  Company Number: US-BIOGENIDEC-2011BI035393

PATIENT
  Age: 50 Year
  Sex: Female

DRUGS (6)
  1. TYSABRI [Suspect]
     Indication: MULTIPLE SCLEROSIS
     Route: 042
     Dates: start: 20110812, end: 20110915
  2. TYSABRI [Suspect]
     Route: 042
     Dates: start: 20090122, end: 20101022
  3. TYSABRI [Suspect]
     Route: 042
     Dates: start: 20071108, end: 20071108
  4. TYSABRI [Suspect]
     Route: 042
     Dates: start: 20080618, end: 20081106
  5. TYSABRI [Suspect]
     Route: 042
     Dates: start: 20061108, end: 20061206
  6. AVONEX [Concomitant]
     Indication: MULTIPLE SCLEROSIS
     Route: 030
     Dates: start: 20040731

REACTIONS (2)
  - DEATH [None]
  - PNEUMONIA [None]
